FAERS Safety Report 15690666 (Version 1)
Quarter: 2018Q4

REPORT INFORMATION
  Report Type: Spontaneous
  Country: IT (occurrence: IT)
  Receive Date: 20181205
  Receipt Date: 20181205
  Transmission Date: 20190205
  Serious: Yes (Hospitalization)
  Sender: FDA-Public Use
  Company Number: IT-TEVA-2018-IT-982377

PATIENT
  Age: 64 Year
  Sex: Male

DRUGS (5)
  1. GEMCITABINE [Suspect]
     Active Substance: GEMCITABINE\GEMCITABINE HYDROCHLORIDE
     Indication: CHEMOTHERAPY
     Route: 042
     Dates: start: 20080401, end: 20080401
  2. DELTACORTENE [Concomitant]
     Active Substance: PREDNISONE
     Indication: PNEUMONIA
     Route: 048
     Dates: start: 20080323, end: 20080408
  3. PLASIL [Concomitant]
     Active Substance: METOCLOPRAMIDE HYDROCHLORIDE
     Indication: NAUSEA
     Route: 048
     Dates: start: 20080323, end: 20080408
  4. CISPLATIN. [Suspect]
     Active Substance: CISPLATIN
     Indication: CHEMOTHERAPY
     Route: 042
     Dates: start: 20080401, end: 20080401
  5. SPIRIVA [Concomitant]
     Active Substance: TIOTROPIUM BROMIDE MONOHYDRATE
     Indication: BRONCHOPULMONARY DISEASE
     Route: 048
     Dates: start: 20080323, end: 20080408

REACTIONS (3)
  - Leukopenia [Unknown]
  - Thrombocytopenia [Unknown]
  - Epistaxis [Unknown]

NARRATIVE: CASE EVENT DATE: 20080408
